FAERS Safety Report 4471907-4 (Version None)
Quarter: 2004Q4

REPORT INFORMATION
  Report Type: 
  Country: None (occurrence: None)
  Receive Date: 20041007
  Receipt Date: 20040917
  Transmission Date: 20050328
  Serious: Yes (Hospitalization)
  Sender: FDA-Public Use
  Company Number: 200410287BYL

PATIENT
  Age: 78 Year
  Sex: Female
  Weight: 46 kg

DRUGS (11)
  1. ASPIRIN [Suspect]
     Indication: CEREBRAL INFARCTION
     Dosage: 100 MG, QD, ORAL
     Route: 048
     Dates: start: 20030801, end: 20040412
  2. ASPIRIN [Suspect]
     Indication: CEREBRAL INFARCTION
     Dosage: 100 MG, QD, ORAL
     Route: 048
     Dates: start: 20040511, end: 20040513
  3. LANSOPRAZOLE [Suspect]
     Indication: REFLUX OESOPHAGITIS
     Dosage: 30 MG, QD, ORAL
     Route: 048
     Dates: start: 20040213, end: 20040412
  4. ALDACTONE-A [Concomitant]
  5. LAC B [Concomitant]
  6. INTENURSE [Concomitant]
  7. SENNARIDE [Concomitant]
  8. MOBILAT [Concomitant]
  9. KENALOG [Concomitant]
  10. ISODINE [Concomitant]
  11. CALCIUM LACTATE [Concomitant]

REACTIONS (2)
  - CYCLIC NEUTROPENIA [None]
  - GINGIVITIS [None]
